FAERS Safety Report 9440239 (Version 1)
Quarter: 2013Q3

REPORT INFORMATION
  Report Type: Report from Study
  Country: JP (occurrence: JP)
  Receive Date: 20130805
  Receipt Date: 20130805
  Transmission Date: 20140515
  Serious: Yes (Death, Hospitalization, Other)
  Sender: FDA-Public Use
  Company Number: PHHY2012JP064126

PATIENT
  Age: 79 Year
  Sex: Male

DRUGS (8)
  1. AFINITOR [Suspect]
     Indication: METASTATIC RENAL CELL CARCINOMA
     Dosage: 10 MG, DAILY
     Route: 048
     Dates: start: 20110623, end: 20110705
  2. AFINITOR [Suspect]
     Dosage: 5 MG, DAILY
     Route: 048
     Dates: start: 20110706, end: 20110712
  3. AFINITOR [Suspect]
     Dosage: 2.5 MG, DAILY
     Route: 048
     Dates: start: 20110713, end: 20120508
  4. AFINITOR [Suspect]
     Dosage: 5 MG, DAILY
     Route: 048
     Dates: start: 20120509, end: 20120709
  5. NIFEDIPINE [Concomitant]
     Dosage: 40 MG
     Route: 048
     Dates: end: 20110802
  6. THYRADIN [Concomitant]
     Dosage: 50 UG
     Route: 048
     Dates: end: 20120717
  7. FUROSEMIDE [Concomitant]
     Indication: PROPHYLAXIS
     Dosage: 10 MG
     Route: 048
     Dates: end: 20120717
  8. OLMETEC [Concomitant]
     Dosage: 20 MG
     Route: 048
     Dates: end: 20110802

REACTIONS (9)
  - Malignant neoplasm progression [Fatal]
  - Metastatic renal cell carcinoma [Fatal]
  - Interstitial lung disease [Not Recovered/Not Resolved]
  - Dyspnoea [Not Recovered/Not Resolved]
  - Cough [Not Recovered/Not Resolved]
  - Pulmonary function test abnormal [Not Recovered/Not Resolved]
  - Pyrexia [Unknown]
  - Alanine aminotransferase decreased [Unknown]
  - Drug effect incomplete [Unknown]
